FAERS Safety Report 7402188-7 (Version None)
Quarter: 2011Q2

REPORT INFORMATION
  Report Type: 
  Country: None (occurrence: None)
  Receive Date: 20110401
  Receipt Date: 20110322
  Transmission Date: 20111010
  Serious: Yes (Hospitalization)
  Sender: FDA-Public Use
  Company Number: EU-2011-10040

PATIENT
  Sex: Female

DRUGS (2)
  1. SAMSCA [Suspect]
     Indication: HYPONATRAEMIA
     Dosage: 15 MG MILLIGRAM(S), SINGLE, ORAL
     Route: 048
     Dates: start: 20110218, end: 20110218
  2. RINGER (SODIUM CHLORIDE) [Concomitant]

REACTIONS (3)
  - HYPERTONIA [None]
  - RAPID CORRECTION OF HYPONATRAEMIA [None]
  - CONFUSIONAL STATE [None]
